FAERS Safety Report 6122702-1 (Version None)
Quarter: 2009Q1

REPORT INFORMATION
  Report Type: 
  Country: None (occurrence: None)
  Receive Date: 20090318
  Receipt Date: 20090305
  Transmission Date: 20090719
  Serious: Yes (Other)
  Sender: FDA-Public Use
  Company Number: GB-TEVA-187642ISR

PATIENT

DRUGS (1)
  1. GABAPENTIN [Suspect]

REACTIONS (1)
  - HAEMOPTYSIS [None]
